FAERS Safety Report 8900688 (Version 2)
Quarter: 2012Q4

REPORT INFORMATION
  Report Type: 
  Country: JP (occurrence: JP)
  Receive Date: 20121109
  Receipt Date: 20121118
  Transmission Date: 20130627
  Serious: No
  Sender: FDA-Public Use
  Company Number: JP-MERCK-1211JPN002945

PATIENT
  Age: 47 Year
  Sex: Female

DRUGS (3)
  1. GASTER [Suspect]
     Indication: PROPHYLAXIS
     Dosage: 40 mg, prn
     Route: 048
     Dates: end: 201211
  2. SUPLATAST TOSYLATE [Suspect]
     Indication: ASTHMA
     Dosage: UNK
     Route: 048
     Dates: end: 201211
  3. PREDONINE [Concomitant]
     Dosage: UNK
     Dates: end: 201211

REACTIONS (1)
  - Ageusia [Recovering/Resolving]
